FAERS Safety Report 15482973 (Version 5)
Quarter: 2019Q3

REPORT INFORMATION
  Report Type: Spontaneous
  Country: US (occurrence: US)
  Receive Date: 20181010
  Receipt Date: 20190731
  Transmission Date: 20191004
  Serious: No
  Sender: FDA-Public Use
  Company Number: US-PFIZER INC-2018408700

PATIENT
  Age: 68 Year

DRUGS (17)
  1. LIDODERM [Suspect]
     Active Substance: LIDOCAINE
     Dosage: UNK
  2. ESTROGENS CONJUGATED [Suspect]
     Active Substance: ESTROGENS, CONJUGATED
     Dosage: UNK
  3. CELECOXIB. [Suspect]
     Active Substance: CELECOXIB
     Dosage: UNK
  4. CODEINE [Suspect]
     Active Substance: CODEINE
     Dosage: UNK
  5. UREA HYDROCHLORIDE [Suspect]
     Active Substance: UREA
     Dosage: UNK
  6. CYMBALTA [Suspect]
     Active Substance: DULOXETINE HYDROCHLORIDE
     Dosage: UNK
  7. QUININE SULFATE. [Suspect]
     Active Substance: QUININE SULFATE
     Dosage: UNK
  8. PREDNISONE. [Suspect]
     Active Substance: PREDNISONE
     Dosage: UNK
  9. PYRIDIUM [Suspect]
     Active Substance: PHENAZOPYRIDINE
     Dosage: UNK
  10. LIDOCAINE HCL [Suspect]
     Active Substance: LIDOCAINE HYDROCHLORIDE
     Dosage: UNK
  11. MORPHINE SULFATE. [Suspect]
     Active Substance: MORPHINE SULFATE
     Dosage: UNK
  12. BACTRIM [Suspect]
     Active Substance: SULFAMETHOXAZOLE\TRIMETHOPRIM
     Dosage: UNK
  13. GABAPENTIN. [Suspect]
     Active Substance: GABAPENTIN
     Dosage: UNK
  14. LEVAQUIN [Suspect]
     Active Substance: LEVOFLOXACIN
     Dosage: UNK
  15. OXYBUTYNIN CHLORIDE. [Suspect]
     Active Substance: OXYBUTYNIN CHLORIDE
     Dosage: UNK
  16. QUININE [Suspect]
     Active Substance: QUININE
     Dosage: UNK
  17. TRAMADOL. [Suspect]
     Active Substance: TRAMADOL
     Dosage: UNK

REACTIONS (1)
  - Drug hypersensitivity [Unknown]
